FAERS Safety Report 10775640 (Version 1)
Quarter: 2015Q1

REPORT INFORMATION
  Report Type: Spontaneous
  Country: US (occurrence: None)
  Receive Date: 20150205
  Receipt Date: 20150205
  Transmission Date: 20150721
  Serious: Yes (Other)
  Sender: FDA-Public Use
  Company Number: 201501163

PATIENT
  Age: 55 Year
  Sex: Male

DRUGS (2)
  1. ANDROGEL [Suspect]
     Active Substance: TESTOSTERONE
     Indication: BLOOD TESTOSTERONE DECREASED
     Route: 061
  2. TESTIM [Suspect]
     Active Substance: TESTOSTERONE
     Indication: BLOOD TESTOSTERONE DECREASED
     Route: 062

REACTIONS (9)
  - Economic problem [None]
  - Cerebrovascular accident [None]
  - Physical disability [None]
  - Myocardial infarction [None]
  - Anxiety [None]
  - Emotional distress [None]
  - Activities of daily living impaired [None]
  - Impaired work ability [None]
  - Pain [None]

NARRATIVE: CASE EVENT DATE: 2003
